FAERS Safety Report 15345648 (Version 1)
Quarter: 2018Q3

REPORT INFORMATION
  Report Type: Spontaneous
  Country: US (occurrence: US)
  Receive Date: 20180904
  Receipt Date: 20180904
  Transmission Date: 20181010
  Serious: No
  Sender: FDA-Public Use
  Company Number: US-BAUSCH-BL-2018-002920

PATIENT
  Age: 66 Year
  Sex: Male
  Weight: 79.45 kg

DRUGS (4)
  1. BRIMONIDINE [Suspect]
     Active Substance: BRIMONIDINE TARTRATE
     Indication: PRODUCT USED FOR UNKNOWN INDICATION
     Route: 031
  2. LUMIGAN [Concomitant]
     Active Substance: BIMATOPROST
     Indication: PRODUCT USED FOR UNKNOWN INDICATION
     Route: 031
  3. DORZOLAMIDE HYDROCHLORIDE AND TIMOLOL MALEATE [Suspect]
     Active Substance: DORZOLAMIDE HYDROCHLORIDE\TIMOLOL MALEATE
     Indication: GLAUCOMA
     Route: 031
  4. DORZOLAMIDE HYDROCHLORIDE AND TIMOLOL MALEATE [Suspect]
     Active Substance: DORZOLAMIDE HYDROCHLORIDE\TIMOLOL MALEATE
     Dosage: DISPENSING 2 DROPS INSTEAD OF 1 DROP
     Route: 031

REACTIONS (3)
  - Nausea [Recovered/Resolved]
  - Incorrect dose administered [Unknown]
  - Headache [Not Recovered/Not Resolved]
